FAERS Safety Report 22802622 (Version 5)
Quarter: 2023Q4

REPORT INFORMATION
  Report Type: Spontaneous
  Country: ES (occurrence: ES)
  Receive Date: 20230809
  Receipt Date: 20231109
  Transmission Date: 20240110
  Serious: Yes (Death, Hospitalization, Other)
  Sender: FDA-Public Use
  Company Number: ES-BRISTOL-MYERS SQUIBB COMPANY-2023-103205

PATIENT
  Age: 69 Year
  Sex: Female

DRUGS (13)
  1. BORTEZOMIB [Suspect]
     Active Substance: BORTEZOMIB
     Indication: Allogenic stem cell transplantation
     Dosage: 2 VRD CONSOLIDATION CYCLESOF BORTEZOMIB, LEN AND DEXAMETHASONE (VRD)
     Route: 065
  2. BORTEZOMIB [Suspect]
     Active Substance: BORTEZOMIB
     Indication: Plasma cell myeloma
     Dosage: FIRST LINE THERAPY CONSISTED OF 4 CYCLESOF BORTEZOMIB, LEN AND DEXAMETHASONE (VRD)
     Route: 065
  3. LENALIDOMIDE [Suspect]
     Active Substance: LENALIDOMIDE
     Indication: Allogenic stem cell transplantation
     Dosage: 10 MILLIGRAM, ONCE A DAY(2 CYCLES)
     Route: 048
  4. LENALIDOMIDE [Suspect]
     Active Substance: LENALIDOMIDE
     Indication: Plasma cell myeloma
     Dosage: FIRST LINE THERAPY CONSISTED OF 4 CYCLESOF BORTEZOMIB, LEN AND DEXAMETHASONE (VRD)
     Route: 065
  5. LENALIDOMIDE [Suspect]
     Active Substance: LENALIDOMIDE
     Dosage: 2 VRD CONSOLIDATION CYCLESOF BORTEZOMIB, LEN AND DEXAMETHASONE (VRD)
     Route: 065
  6. DEXAMETHASONE [Suspect]
     Active Substance: DEXAMETHASONE
     Indication: Plasma cell myeloma
     Dosage: FIRST LINE THERAPY CONSISTED OF 4 CYCLESOF BORTEZOMIB, LEN AND DEXAMETHASONE (VRD)
     Route: 065
  7. DEXAMETHASONE [Suspect]
     Active Substance: DEXAMETHASONE
     Indication: Allogenic stem cell transplantation
     Dosage: 2 VRD CONSOLIDATION CYCLESOF BORTEZOMIB, LEN AND DEXAMETHASONE (VRD)
     Route: 065
  8. CYCLOPHOSPHAMIDE [Concomitant]
     Active Substance: CYCLOPHOSPHAMIDE
     Indication: B-cell type acute leukaemia
     Dosage: UNK
     Route: 065
  9. CYTARABINE [Concomitant]
     Active Substance: CYTARABINE
     Indication: B-cell type acute leukaemia
     Dosage: UNK
     Route: 065
  10. DEXAMETHASONE [Concomitant]
     Active Substance: DEXAMETHASONE
     Indication: B-cell type acute leukaemia
     Dosage: UNK
     Route: 065
  11. DEXAMETHASONE [Concomitant]
     Active Substance: DEXAMETHASONE
     Indication: Plasma cell myeloma
  12. IDARUBICIN [Concomitant]
     Active Substance: IDARUBICIN
     Indication: B-cell type acute leukaemia
     Dosage: UNK
     Route: 065
  13. VINCRISTINE [Concomitant]
     Active Substance: VINCRISTINE
     Indication: B-cell type acute leukaemia
     Dosage: UNK
     Route: 065

REACTIONS (1)
  - B-cell type acute leukaemia [Fatal]
